FAERS Safety Report 5311228-0 (Version None)
Quarter: 2007Q2

REPORT INFORMATION
  Report Type: 
  Country: None (occurrence: None)
  Receive Date: 20070430
  Receipt Date: 20070418
  Transmission Date: 20071010
  Serious: Yes (Hospitalization)
  Sender: FDA-Public Use
  Company Number: PHHO2007AU05623

PATIENT
  Age: 43 Year
  Sex: Male
  Weight: 78.8 kg

DRUGS (5)
  1. CERTICAN [Suspect]
     Indication: PROPHYLAXIS AGAINST TRANSPLANT REJECTION
     Dosage: 720 MG, BID
     Route: 048
     Dates: start: 20061111
  2. NEORAL [Suspect]
     Indication: RENAL TRANSPLANT
     Dosage: 350 MG/DAY
     Route: 048
     Dates: start: 20070320, end: 20070322
  3. NEORAL [Suspect]
     Dosage: 325 MG/DAY
     Route: 048
     Dates: start: 20070323, end: 20070323
  4. NEORAL [Suspect]
     Dosage: 300 MG DAILY
     Route: 048
     Dates: start: 20070324
  5. NEORAL [Suspect]
     Dosage: 225 MG, BID
     Route: 048
     Dates: start: 20061111, end: 20070319

REACTIONS (3)
  - BK VIRUS INFECTION [None]
  - BLOOD CREATININE INCREASED [None]
  - NEPHROPATHY TOXIC [None]
